FAERS Safety Report 16454343 (Version 1)
Quarter: 2019Q2

REPORT INFORMATION
  Report Type: Spontaneous
  Country: US (occurrence: US)
  Receive Date: 20190620
  Receipt Date: 20190620
  Transmission Date: 20190711
  Serious: No
  Sender: FDA-Public Use
  Company Number: US-ELI_LILLY_AND_COMPANY-US201906007695

PATIENT
  Sex: Female

DRUGS (1)
  1. TRULICITY [Suspect]
     Active Substance: DULAGLUTIDE
     Indication: RENAL DISORDER
     Dosage: 0.75 MG, UNKNOWN
     Route: 065

REACTIONS (4)
  - Injection site erythema [Not Recovered/Not Resolved]
  - Off label use [Unknown]
  - Injection site pruritus [Unknown]
  - Injection site irritation [Unknown]

NARRATIVE: CASE EVENT DATE: 20190609
